FAERS Safety Report 7515523-6 (Version None)
Quarter: 2011Q2

REPORT INFORMATION
  Report Type: 
  Country: None (occurrence: None)
  Receive Date: 20110601
  Receipt Date: 20100629
  Transmission Date: 20111010
  Serious: No
  Sender: FDA-Public Use
  Company Number: US-PFIZER INC-2010081398

PATIENT
  Sex: Male
  Weight: 72.562 kg

DRUGS (1)
  1. CHANTIX [Suspect]
     Indication: SMOKING CESSATION THERAPY
     Dosage: 0.5 MG, UNK
     Route: 048
     Dates: start: 20100101, end: 20100601

REACTIONS (8)
  - ANGER [None]
  - IMPATIENCE [None]
  - ABNORMAL BEHAVIOUR [None]
  - PANIC ATTACK [None]
  - STRESS [None]
  - FEELING ABNORMAL [None]
  - NIGHTMARE [None]
  - ABNORMAL DREAMS [None]
